FAERS Safety Report 26037508 (Version 1)
Quarter: 2025Q4

REPORT INFORMATION
  Report Type: Spontaneous
  Country: EU (occurrence: EU)
  Receive Date: 20251112
  Receipt Date: 20251112
  Transmission Date: 20260118
  Serious: Yes (Other)
  Sender: ABBVIE
  Company Number: EU-ABBVIE-6530629

PATIENT
  Age: 55 Year
  Sex: Male
  Weight: 85 kg

DRUGS (15)
  1. VENETOCLAX [Suspect]
     Active Substance: VENETOCLAX
     Indication: Chronic lymphocytic leukaemia
     Route: 048
     Dates: start: 20241105
  2. VENETOCLAX [Suspect]
     Active Substance: VENETOCLAX
     Indication: Chronic lymphocytic leukaemia
     Route: 048
     Dates: start: 20241119
  3. VENETOCLAX [Suspect]
     Active Substance: VENETOCLAX
     Indication: Chronic lymphocytic leukaemia
     Route: 048
     Dates: start: 20241126
  4. VENETOCLAX [Suspect]
     Active Substance: VENETOCLAX
     Indication: Chronic lymphocytic leukaemia
     Route: 048
     Dates: start: 20241203
  5. VENETOCLAX [Suspect]
     Active Substance: VENETOCLAX
     Indication: Chronic lymphocytic leukaemia
     Route: 048
     Dates: start: 20250305, end: 20250316
  6. ASPIRIN [Concomitant]
     Active Substance: ASPIRIN
     Indication: Product used for unknown indication
  7. OBINUTUZUMAB [Concomitant]
     Active Substance: OBINUTUZUMAB
     Indication: Product used for unknown indication
     Dates: start: 20241007
  8. OBINUTUZUMAB [Concomitant]
     Active Substance: OBINUTUZUMAB
     Indication: Product used for unknown indication
     Dates: start: 20241008
  9. OBINUTUZUMAB [Concomitant]
     Active Substance: OBINUTUZUMAB
     Indication: Product used for unknown indication
     Dates: start: 20241022
  10. OBINUTUZUMAB [Concomitant]
     Active Substance: OBINUTUZUMAB
     Indication: Product used for unknown indication
     Dates: start: 20241029
  11. OBINUTUZUMAB [Concomitant]
     Active Substance: OBINUTUZUMAB
     Indication: Product used for unknown indication
     Dates: start: 20241112
  12. OBINUTUZUMAB [Concomitant]
     Active Substance: OBINUTUZUMAB
     Indication: Product used for unknown indication
     Dates: start: 20241210
  13. OBINUTUZUMAB [Concomitant]
     Active Substance: OBINUTUZUMAB
     Indication: Product used for unknown indication
     Dates: start: 20250712
  14. OBINUTUZUMAB [Concomitant]
     Active Substance: OBINUTUZUMAB
     Indication: Product used for unknown indication
     Dates: start: 20250402
  15. OBINUTUZUMAB [Concomitant]
     Active Substance: OBINUTUZUMAB
     Indication: Product used for unknown indication
     Dates: start: 20250403

REACTIONS (4)
  - Meniscus injury [Unknown]
  - Palmar-plantar erythrodysaesthesia syndrome [Unknown]
  - Skin exfoliation [Unknown]
  - Endodontic procedure [Unknown]

NARRATIVE: CASE EVENT DATE: 20250701
